FAERS Safety Report 25631114 (Version 1)
Quarter: 2025Q3

REPORT INFORMATION
  Report Type: Spontaneous
  Country: EU (occurrence: EU)
  Receive Date: 20250801
  Receipt Date: 20250801
  Transmission Date: 20251020
  Serious: Yes (Death, Life-Threatening, Hospitalization, Other)
  Sender: BAXTER
  Company Number: None

PATIENT
  Age: 5 Year
  Sex: Male

DRUGS (8)
  1. CYCLOPHOSPHAMIDE [Suspect]
     Active Substance: CYCLOPHOSPHAMIDE
     Indication: Prophylaxis against graft versus host disease
     Route: 065
  2. CYCLOPHOSPHAMIDE [Suspect]
     Active Substance: CYCLOPHOSPHAMIDE
     Indication: Bone marrow conditioning regimen
     Dosage: 30 MG/KG, QD (FROM DAY -6 TO DAY -3)
     Route: 065
  3. CYCLOSPORINE [Suspect]
     Active Substance: CYCLOSPORINE
     Indication: Prophylaxis against graft versus host disease
     Dosage: 3 MG/KG, QD (FROM DAY +5)
     Route: 065
  4. MYCOPHENOLATE MOFETIL [Suspect]
     Active Substance: MYCOPHENOLATE MOFETIL
     Indication: Prophylaxis against graft versus host disease
     Dosage: 60 MG/KG, QD IN 3 DOSES (FROM DAY +5)
     Route: 065
  5. MYCOPHENOLATE MOFETIL [Suspect]
     Active Substance: MYCOPHENOLATE MOFETIL
     Dosage: 60 MG/KG, QD (FROM DAY +1)
     Route: 065
  6. TACROLIMUS [Suspect]
     Active Substance: TACROLIMUS
     Indication: Prophylaxis against graft versus host disease
     Dosage: 0.1 MG/KG, QD (MODULATED ACCORDING TO BLOOD LEVELS FROM DAY -1)
     Route: 042
  7. PREDNISONE [Suspect]
     Active Substance: PREDNISONE
     Indication: Prophylaxis against graft versus host disease
     Route: 065
  8. RUXOLITINIB [Suspect]
     Active Substance: RUXOLITINIB
     Indication: Prophylaxis against graft versus host disease
     Route: 065

REACTIONS (18)
  - Scedosporium infection [Fatal]
  - Cerebral fungal infection [Fatal]
  - Brain herniation [Fatal]
  - Brain oedema [Fatal]
  - Brain abscess [Fatal]
  - Coma [Fatal]
  - Transplant failure [Unknown]
  - Joint abscess [Unknown]
  - Hepatic vein occlusion [Unknown]
  - Graft versus host disease in skin [Unknown]
  - Hydrocephalus [Unknown]
  - Cytomegalovirus infection [Unknown]
  - Respiratory syncytial virus infection [Unknown]
  - Influenza [Unknown]
  - Haemodynamic instability [Unknown]
  - Sepsis [Unknown]
  - Pericardial effusion [Unknown]
  - Pyrexia [Unknown]
